FAERS Safety Report 9775353 (Version 1)
Quarter: 2013Q4

REPORT INFORMATION
  Report Type: Spontaneous
  Country: US (occurrence: None)
  Receive Date: 20131219
  Receipt Date: 20131219
  Transmission Date: 20140711
  Serious: Yes (Other)
  Sender: FDA-Public Use
  Company Number: None

PATIENT
  Sex: 0

DRUGS (2)
  1. SINUS WASH [Suspect]
     Indication: SINUS OPERATION
     Dosage: 1 PACKET PER CUP OF WATER, 2-3 TIMES DAILY, NETI POT
     Dates: start: 20131029, end: 20131125
  2. SINUS WASH [Suspect]
     Indication: NASAL OPERATION
     Dosage: 1 PACKET PER CUP OF WATER, 2-3 TIMES DAILY, NETI POT
     Dates: start: 20131029, end: 20131125

REACTIONS (2)
  - Post procedural infection [None]
  - Product quality issue [None]
